FAERS Safety Report 10083348 (Version 1)
Quarter: 2014Q2

REPORT INFORMATION
  Report Type: Spontaneous
  Country: US (occurrence: None)
  Receive Date: 20140415
  Receipt Date: 20140415
  Transmission Date: 20141212
  Serious: Yes (Disabling)
  Sender: FDA-Public Use
  Company Number: None

PATIENT
  Age: 53 Year
  Sex: Female
  Weight: 40.82 kg

DRUGS (2)
  1. VANCYCLOVIR 500MG AUROBINDO [Suspect]
     Indication: HERPES ZOSTER
     Route: 048
     Dates: start: 20140318, end: 20140408
  2. VANCYCLOVIR 500MG AUROBINDO [Suspect]
     Indication: VERTIGO
     Route: 048
     Dates: start: 20140318, end: 20140408

REACTIONS (16)
  - Ulcer [None]
  - Gastrooesophageal reflux disease [None]
  - Dysphagia [None]
  - Product quality issue [None]
  - Eructation [None]
  - Nausea [None]
  - Sensation of foreign body [None]
  - Sensory disturbance [None]
  - Insomnia [None]
  - Abdominal distension [None]
  - Decreased appetite [None]
  - Weight decreased [None]
  - Abdominal distension [None]
  - Abdominal pain upper [None]
  - Gastric ulcer [None]
  - Oesophageal ulcer [None]
